FAERS Safety Report 8585664 (Version 2)
Quarter: 2013Q2

REPORT INFORMATION
  Report Type: Spontaneous
  Country: US (occurrence: US)
  Receive Date: 20120530
  Receipt Date: 20130530
  Transmission Date: 20140414
  Serious: Yes (Other)
  Sender: FDA-Public Use
  Company Number: US-GLAXOSMITHKLINE-A0964841A

PATIENT
  Age: 4 Year
  Sex: Male
  Weight: 16.6 kg

DRUGS (3)
  1. FLOLAN [Suspect]
     Indication: PULMONARY HYPERTENSION
     Dosage: 90NGKM UNKNOWN
     Dates: start: 20080718
  2. TRACLEER [Concomitant]
     Dosage: 31.25MG TWICE PER DAY
  3. SILDENAFIL [Concomitant]

REACTIONS (4)
  - Headache [Recovering/Resolving]
  - Vomiting [Unknown]
  - Haematochezia [Unknown]
  - Thrombocytopenia [Unknown]
